FAERS Safety Report 4847823-2 (Version None)
Quarter: 2005Q4

REPORT INFORMATION
  Report Type: 
  Country: None (occurrence: None)
  Receive Date: 20051206
  Receipt Date: 20051123
  Transmission Date: 20060501
  Serious: Yes (Hospitalization, Other)
  Sender: FDA-Public Use
  Company Number: 2005161252

PATIENT
  Sex: Female
  Weight: 61.6892 kg

DRUGS (12)
  1. NEURONTIN [Suspect]
     Indication: NEURALGIA
     Dosage: 900 MG (300 MG, 3 IN 1 D),
  2. LYRICA [Suspect]
     Indication: NEURALGIA
     Dosage: 150 MG (50 MG, 3 IN 1 D),
     Dates: start: 20051117
  3. ARICEPT [Suspect]
     Indication: PARKINSON'S DISEASE
  4. ACETAMINOPHEN [Suspect]
     Indication: NEURALGIA
  5. CYMBALTA [Suspect]
     Indication: NEURALGIA
  6. ANTI-PARKINSON AGENTS (ANTI-PARKINSON AGENTS) [Concomitant]
  7. FLECAINIDE ACETATE [Concomitant]
  8. POLYETHYLENE GLYCOL (POLYETHYLENE GLYCOL) [Concomitant]
  9. CITRACAL + D (CALCIUM CITRATE, ERGOCALCIFEROL) [Concomitant]
  10. MULTIVITAMIN [Concomitant]
  11. FERROUS SULFATE TAB [Concomitant]
  12. ASPIRIN [Concomitant]

REACTIONS (11)
  - APHASIA [None]
  - ARTHROPATHY [None]
  - CHILLS [None]
  - CONVULSION [None]
  - DRUG INEFFECTIVE [None]
  - FALL [None]
  - HEART RATE INCREASED [None]
  - LOWER LIMB FRACTURE [None]
  - SOMNOLENCE [None]
  - TEMPERATURE INTOLERANCE [None]
  - TREATMENT NONCOMPLIANCE [None]
